FAERS Safety Report 6378785-7 (Version None)
Quarter: 2009Q3

REPORT INFORMATION
  Report Type: 
  Country: None (occurrence: None)
  Receive Date: 20090928
  Receipt Date: 20090924
  Transmission Date: 20100115
  Serious: Yes (Hospitalization)
  Sender: FDA-Public Use
  Company Number: DE-BRISTOL-MYERS SQUIBB COMPANY-14742670

PATIENT
  Age: 69 Year
  Sex: Male
  Weight: 70 kg

DRUGS (4)
  1. SPRYCEL [Suspect]
     Indication: CHRONIC MYELOID LEUKAEMIA
     Route: 048
     Dates: start: 20080201, end: 20090814
  2. METOPROLOL [Concomitant]
     Indication: CARDIOVASCULAR DISORDER
  3. ASPIRIN [Concomitant]
     Indication: COAGULOPATHY
  4. NULYTELY [Concomitant]
     Indication: CONSTIPATION
     Route: 048

REACTIONS (1)
  - CHYLOTHORAX [None]
